FAERS Safety Report 10186232 (Version 1)
Quarter: 2014Q2

REPORT INFORMATION
  Report Type: Spontaneous
  Country: FR (occurrence: FR)
  Receive Date: 20140521
  Receipt Date: 20140521
  Transmission Date: 20141212
  Serious: Yes (Other)
  Sender: FDA-Public Use
  Company Number: FR-GLAXOSMITHKLINE-B0993568A

PATIENT
  Age: 29 Year
  Sex: Female

DRUGS (10)
  1. AZANTAC [Suspect]
     Indication: PREMEDICATION
     Dosage: 50MG SINGLE DOSE
     Route: 042
     Dates: start: 20140401, end: 20140401
  2. ONDANSETRON [Suspect]
     Indication: PREMEDICATION
     Dosage: 8MG SINGLE DOSE
     Route: 042
     Dates: start: 20140401, end: 20140401
  3. OXALIPLATINE [Suspect]
     Indication: ADENOCARCINOMA OF COLON
     Route: 042
     Dates: start: 20140401, end: 20140401
  4. POLARAMINE [Suspect]
     Indication: PREMEDICATION
     Dosage: 5MG SINGLE DOSE
     Route: 042
     Dates: start: 20140401, end: 20140401
  5. METHYLPREDNISOLONE [Suspect]
     Indication: PREMEDICATION
     Dosage: 40MG SINGLE DOSE
     Route: 042
     Dates: start: 20140401, end: 20140401
  6. TARDYFERON [Concomitant]
     Route: 048
  7. LEVOTHYROX [Concomitant]
     Route: 048
  8. ZOLOFT [Concomitant]
     Route: 048
  9. ELVORINE [Concomitant]
     Indication: ADENOCARCINOMA OF COLON
     Dosage: 350MG CYCLIC
  10. 5 FLUOROURACIL [Concomitant]
     Indication: ADENOCARCINOMA OF COLON

REACTIONS (3)
  - Dyspnoea [Recovered/Resolved]
  - Rash [Recovered/Resolved]
  - Feeling hot [Recovered/Resolved]
